FAERS Safety Report 4636158-9 (Version None)
Quarter: 2005Q2

REPORT INFORMATION
  Report Type: 
  Country: None (occurrence: None)
  Receive Date: 20050415
  Receipt Date: 20050324
  Transmission Date: 20051028
  Serious: No
  Sender: FDA-Public Use
  Company Number: AU-GLAXOSMITHKLINE-B0376009A

PATIENT
  Age: 2 Year
  Sex: Female
  Weight: 14 kg

DRUGS (1)
  1. CHILDREN'S PANADOL ORIGINAL BABY DROPS [Suspect]
     Dosage: 12ML PER DAY
     Route: 048
     Dates: start: 20050324

REACTIONS (3)
  - ACCIDENTAL OVERDOSE [None]
  - NO ADVERSE DRUG EFFECT [None]
  - PHARMACEUTICAL PRODUCT COMPLAINT [None]
